FAERS Safety Report 8502195-7 (Version None)
Quarter: 2012Q2

REPORT INFORMATION
  Report Type: 
  Country: None (occurrence: None)
  Receive Date: 20120405
  Receipt Date: 20100930
  Transmission Date: 20120825
  Serious: Yes (Other)
  Sender: FDA-Public Use
  Company Number: PHHY2010US65794

PATIENT

DRUGS (1)
  1. RECLAST [Suspect]
     Dosage: 5 MG, INTRAVENOUS
     Route: 042

REACTIONS (1)
  - RENAL FAILURE CHRONIC [None]
